FAERS Safety Report 7647529-0 (Version None)
Quarter: 2011Q3

REPORT INFORMATION
  Report Type: 
  Country: None (occurrence: None)
  Receive Date: 20110801
  Receipt Date: 20110722
  Transmission Date: 20111222
  Serious: Yes (Death)
  Sender: FDA-Public Use
  Company Number: JP-GLAXOSMITHKLINE-B0683539A

PATIENT
  Sex: Male
  Weight: 63 kg

DRUGS (57)
  1. CYCLOSPORINE [Concomitant]
     Indication: IMMUNOSUPPRESSION
     Dosage: 20MG PER DAY
     Route: 065
     Dates: start: 20050330, end: 20050529
  2. TELEMIN SOFT [Concomitant]
     Dosage: 10MG PER DAY
     Route: 054
     Dates: start: 20050330
  3. CHLORHEXIDINE GLUCONATE [Concomitant]
     Dosage: 500ML PER DAY
     Route: 061
     Dates: start: 20050413
  4. BORRAZA-G [Concomitant]
     Dosage: 33.6G PER DAY
     Route: 061
     Dates: start: 20050413
  5. FUNGUARD [Concomitant]
     Dosage: 50MG PER DAY
     Route: 042
     Dates: start: 20050401
  6. VITAJECT [Concomitant]
     Dosage: 1IUAX PER DAY
     Route: 042
     Dates: start: 20050404
  7. ALKERAN [Suspect]
     Indication: CORD BLOOD TRANSPLANT THERAPY
     Dosage: 130MGM2 PER DAY
     Route: 042
     Dates: start: 20050329, end: 20050329
  8. ALLOPURINOL [Concomitant]
     Dosage: 200MG PER DAY
     Route: 048
     Dates: start: 20050322
  9. GLYCEROL 2.6% [Concomitant]
     Dosage: 240ML PER DAY
     Route: 054
     Dates: start: 20050331
  10. VENOGLOBULIN [Concomitant]
     Route: 042
     Dates: start: 20050325
  11. GLUCOSE [Concomitant]
     Dosage: 250ML PER DAY
     Route: 042
     Dates: start: 20050401
  12. NEOAMIYU [Concomitant]
     Dosage: 400ML PER DAY
     Route: 042
     Dates: start: 20050403
  13. UNKNOWN MEDICATION [Concomitant]
     Dosage: 2000ML PER DAY
     Route: 042
     Dates: start: 20050419
  14. ISODINE [Concomitant]
     Dosage: 5ML PER DAY
     Route: 002
     Dates: start: 20050409
  15. SIMPLE SYRUP [Concomitant]
     Route: 048
     Dates: start: 20050322
  16. PURSENNID [Concomitant]
     Dosage: 24MG PER DAY
     Route: 048
     Dates: start: 20050327
  17. KYTRIL [Concomitant]
     Dosage: 3MG PER DAY
     Route: 042
     Dates: start: 20050329
  18. LEVOFLOXACIN [Concomitant]
     Dosage: 300MG PER DAY
     Route: 048
     Dates: start: 20050421
  19. LOPERAMIDE HCL [Concomitant]
     Dosage: 1MG PER DAY
     Route: 048
     Dates: start: 20050422
  20. OMEPRAZOLE [Concomitant]
     Dosage: 1IUAX PER DAY
     Route: 042
     Dates: start: 20050405
  21. FLUCONAZOLE [Concomitant]
     Dosage: 5ML PER DAY
     Route: 042
     Dates: start: 20050418
  22. FLUDARA [Suspect]
     Indication: CORD BLOOD TRANSPLANT THERAPY
     Dosage: 12MGM2 PER DAY
     Route: 042
     Dates: start: 20050325, end: 20050325
  23. RABEPRAZOLE SODIUM [Concomitant]
     Dosage: 10MG PER DAY
     Route: 048
     Dates: start: 20050322
  24. ENTERONON-R [Concomitant]
     Dosage: 3G PER DAY
     Route: 048
     Dates: start: 20050422
  25. HACHIAZULE [Concomitant]
     Dosage: 20MG PER DAY
     Route: 002
     Dates: start: 20050410
  26. NEO-MINOPHAGEN-C [Concomitant]
     Dosage: 40ML PER DAY
     Route: 042
     Dates: start: 20050419
  27. KALIMATE [Concomitant]
     Route: 048
     Dates: start: 20050322
  28. ZOVIRAX [Concomitant]
     Dosage: 400MG PER DAY
     Route: 048
     Dates: start: 20050327
  29. SEROTONE [Concomitant]
     Dosage: 10MG PER DAY
     Route: 042
     Dates: start: 20050325
  30. URSO 250 [Concomitant]
     Dosage: 600MG PER DAY
     Route: 048
     Dates: start: 20050420
  31. ELASE [Concomitant]
     Dosage: 5IUAX PER DAY
     Route: 061
     Dates: start: 20050410
  32. MORPHINE HCL ELIXIR [Concomitant]
     Dosage: 4ML PER DAY
     Dates: start: 20050410
  33. METHOTREXATE [Concomitant]
     Indication: IMMUNOSUPPRESSION
     Dosage: 3MG PER DAY
     Dates: start: 20050401, end: 20050406
  34. SOLU-MEDROL [Concomitant]
     Dosage: 1IUAX PER DAY
     Route: 042
     Dates: start: 20050329
  35. FUROSEMIDE [Concomitant]
     Dosage: 20MG PER DAY
     Route: 048
     Dates: start: 20050422
  36. ZOLPIDEM [Concomitant]
     Dosage: 10MG PER DAY
     Route: 048
     Dates: start: 20050401
  37. AZUNOL [Concomitant]
     Dosage: 15ML PER DAY
     Route: 002
     Dates: start: 20050405
  38. XYLOCAINE [Concomitant]
     Dosage: 20ML PER DAY
     Route: 061
     Dates: start: 20050410
  39. POSTERISAN [Concomitant]
     Dosage: 56G PER DAY
     Route: 061
     Dates: start: 20050421
  40. SANDIMMUNE [Concomitant]
     Dosage: 5ML PER DAY
     Route: 042
     Dates: start: 20050401
  41. ELEMENMIC [Concomitant]
     Dosage: 2ML PER DAY
     Route: 042
     Dates: start: 20050408
  42. GRAN [Concomitant]
     Dates: start: 20050401, end: 20050419
  43. SODIUM BICARBONATE [Concomitant]
     Dosage: 60ML PER DAY
     Route: 042
     Dates: start: 20050329
  44. LOXONIN [Concomitant]
     Dosage: 60MG PER DAY
     Route: 048
     Dates: start: 20050404
  45. LANSOPRAZOLE [Concomitant]
     Dosage: 1IUAX PER DAY
     Route: 048
     Dates: start: 20050421
  46. HIBITANE [Concomitant]
     Dosage: 100ML PER DAY
     Route: 061
     Dates: start: 20050418
  47. SOLITA T [Concomitant]
     Dosage: 2000ML PER DAY
     Route: 042
     Dates: start: 20050401
  48. TIENAM [Concomitant]
     Dosage: 500MG PER DAY
     Route: 042
     Dates: start: 20050401
  49. ZOVIRAX [Concomitant]
     Dosage: 250MG PER DAY
     Route: 042
     Dates: start: 20050405
  50. ASPARA K [Concomitant]
     Dosage: 20ML PER DAY
     Route: 042
     Dates: start: 20050411
  51. TATHION [Concomitant]
     Dosage: 200MG PER DAY
     Dates: start: 20050419
  52. DIFLUCAN [Concomitant]
     Dosage: 400MG PER DAY
     Route: 048
     Dates: start: 20050329
  53. LAXOBERON [Concomitant]
     Dosage: 5MG PER DAY
     Route: 048
     Dates: start: 20050325
  54. SOLITA-T [Concomitant]
     Dosage: 1500ML PER DAY
     Route: 042
     Dates: start: 20050322
  55. GANCICLOVIR [Concomitant]
     Dosage: 500ML PER DAY
     Route: 042
     Dates: start: 20050323
  56. FUROSEMIDE [Concomitant]
     Dosage: 20MG PER DAY
     Route: 042
     Dates: start: 20050329
  57. SOLDEM [Concomitant]
     Dosage: 2000ML PER DAY
     Route: 042
     Dates: start: 20050408

REACTIONS (1)
  - ENCEPHALITIS FUNGAL [None]
